FAERS Safety Report 4289291-8 (Version None)
Quarter: 2004Q1

REPORT INFORMATION
  Report Type: 
  Country: None (occurrence: None)
  Receive Date: 20040203
  Receipt Date: 19990302
  Transmission Date: 20041129
  Serious: Yes (Other)
  Sender: FDA-Public Use
  Company Number: 1999-019

PATIENT
  Age: 45 Year
  Sex: Female
  Weight: 68.0396 kg

DRUGS (3)
  1. DORYX [Suspect]
     Indication: ACNE
     Dosage: 100 MG BID ORAL
     Route: 048
     Dates: start: 19990224, end: 19990302
  2. ESTROGEN [Concomitant]
  3. SOMA [Concomitant]

REACTIONS (1)
  - RASH [None]
